FAERS Safety Report 6843486-5 (Version None)
Quarter: 2010Q2

REPORT INFORMATION
  Report Type: 
  Country: None (occurrence: None)
  Receive Date: 20100629
  Receipt Date: 20100507
  Transmission Date: 20101027
  Serious: No
  Sender: FDA-Public Use
  Company Number: US-WYE-H15153310

PATIENT
  Age: 82 Year
  Sex: Female
  Weight: 72.64 kg

DRUGS (9)
  1. PRISTIQ [Suspect]
     Indication: DEPRESSION
     Dosage: 50 MG 1X PER 1 DAY
     Dates: start: 20100415
  2. CLARITIN [Suspect]
     Indication: HYPERSENSITIVITY
     Dates: start: 20100501
  3. ACIPHEX [Concomitant]
  4. LASIX [Concomitant]
  5. KLOR-CON [Concomitant]
  6. CALTRATE (CALCIUM CARBONATE) [Concomitant]
  7. COUMADIN [Concomitant]
  8. SENOKOT [Concomitant]
  9. ZETIA [Concomitant]

REACTIONS (5)
  - ASTHENOPIA [None]
  - EYE PAIN [None]
  - HEADACHE [None]
  - NAUSEA [None]
  - SOMNOLENCE [None]
